FAERS Safety Report 9025934 (Version 2)
Quarter: 2013Q1

REPORT INFORMATION
  Report Type: Spontaneous
  Country: US (occurrence: US)
  Receive Date: 20130122
  Receipt Date: 20130207
  Transmission Date: 20140127
  Serious: Yes (Life-Threatening, Hospitalization, Other)
  Sender: FDA-Public Use
  Company Number: US-ROCHE-1181457

PATIENT
  Age: 69 Year
  Sex: Male
  Weight: 83.54 kg

DRUGS (2)
  1. XELODA [Suspect]
     Indication: GASTRIC CANCER
     Dosage: 1300 MG
     Route: 048
     Dates: start: 20121128, end: 20121231
  2. EPIRUBICIN [Concomitant]
     Route: 042

REACTIONS (10)
  - Infection [Unknown]
  - Hypotension [Unknown]
  - Staphylococcal infection [Unknown]
  - Gastric perforation [Unknown]
  - Diarrhoea [Recovered/Resolved]
  - Neutropenia [Recovered/Resolved]
  - Thrombocytopenia [Unknown]
  - Septic shock [Recovered/Resolved]
  - Klebsiella sepsis [Recovered/Resolved]
  - Streptococcal sepsis [Recovered/Resolved]
